FAERS Safety Report 5085614-0 (Version None)
Quarter: 2006Q3

REPORT INFORMATION
  Report Type: 
  Country: None (occurrence: None)
  Receive Date: 20060822
  Receipt Date: 20060818
  Transmission Date: 20061208
  Serious: Yes (Hospitalization)
  Sender: FDA-Public Use
  Company Number: ZA-GLAXOSMITHKLINE-B0434895A

PATIENT
  Age: 22 Year
  Sex: Female

DRUGS (2)
  1. ZYBAN [Suspect]
     Route: 048
     Dates: start: 20060801, end: 20060801
  2. PROTON PUMP INHIBITORS [Suspect]
     Route: 065

REACTIONS (2)
  - OVERDOSE [None]
  - SOMNOLENCE [None]
